FAERS Safety Report 24039712 (Version 2)
Quarter: 2024Q3

REPORT INFORMATION
  Report Type: Spontaneous
  Country: IT (occurrence: IT)
  Receive Date: 20240702
  Receipt Date: 20240704
  Transmission Date: 20241016
  Serious: Yes (Hospitalization)
  Sender: RANBAXY
  Company Number: IT-SUN PHARMACEUTICAL INDUSTRIES LTD-2024RR-454170

PATIENT
  Age: 77 Year
  Sex: Female

DRUGS (5)
  1. HYDROCHLOROTHIAZIDE\VALSARTAN [Suspect]
     Active Substance: HYDROCHLOROTHIAZIDE\VALSARTAN
     Indication: Product used for unknown indication
     Dosage: 160/25 MG 8AM, UNK
     Route: 048
  2. VALSARTAN [Suspect]
     Active Substance: VALSARTAN
     Indication: Product used for unknown indication
     Dosage: 80 MG 8PM
     Route: 048
  3. PRADAXA [Concomitant]
     Active Substance: DABIGATRAN ETEXILATE MESYLATE
     Indication: Product used for unknown indication
     Dosage: 110 MG X 2
     Route: 048
  4. XANAX [Concomitant]
     Active Substance: ALPRAZOLAM
     Indication: Product used for unknown indication
     Dosage: UNK
     Route: 048
  5. ZOLPIDEM TARTRATE [Concomitant]
     Active Substance: ZOLPIDEM TARTRATE
     Indication: Product used for unknown indication
     Dosage: 10 MG DAY
     Route: 048

REACTIONS (3)
  - Hyponatraemia [Recovering/Resolving]
  - Confusional state [Recovering/Resolving]
  - Palpitations [Recovering/Resolving]
